FAERS Safety Report 4875578-4 (Version None)
Quarter: 2006Q1

REPORT INFORMATION
  Report Type: 
  Country: None (occurrence: None)
  Receive Date: 20060109
  Receipt Date: 20030808
  Transmission Date: 20060701
  Serious: Yes (Hospitalization)
  Sender: FDA-Public Use
  Company Number: DE-ROCHE-344276

PATIENT
  Age: 25 Year
  Sex: Female
  Weight: 56 kg

DRUGS (30)
  1. DACLIZUMAB [Suspect]
     Route: 042
     Dates: start: 20030726, end: 20030726
  2. DACLIZUMAB [Suspect]
     Route: 042
     Dates: end: 20030825
  3. MYCOPHENOLATE MOFETIL [Suspect]
     Route: 048
     Dates: start: 20030726
  4. MYCOPHENOLATE MOFETIL [Suspect]
     Route: 048
     Dates: end: 20030923
  5. MYCOPHENOLATE MOFETIL [Suspect]
     Route: 048
     Dates: start: 20031013
  6. SIROLIMUS [Suspect]
     Route: 048
     Dates: start: 20030726, end: 20030806
  7. SIROLIMUS [Suspect]
     Route: 048
     Dates: start: 20030810, end: 20030813
  8. CYCLOSPORINE [Suspect]
     Route: 065
  9. STEROIDS [Suspect]
     Route: 042
     Dates: start: 20030726, end: 20030726
  10. STEROIDS [Suspect]
     Route: 042
     Dates: start: 20030727, end: 20030727
  11. PREDNISOLONE [Suspect]
     Route: 048
     Dates: start: 20030728, end: 20030728
  12. PREDNISOLONE [Suspect]
     Route: 048
     Dates: start: 20030729, end: 20030729
  13. PREDNISOLONE [Suspect]
     Route: 048
     Dates: start: 20030730, end: 20030730
  14. PREDNISOLONE [Suspect]
     Route: 048
     Dates: start: 20030731, end: 20030731
  15. PREDNISOLONE [Suspect]
     Route: 048
     Dates: start: 20030801, end: 20030801
  16. PREDNISOLONE [Suspect]
     Route: 048
     Dates: start: 20030802, end: 20030802
  17. PREDNISOLONE [Suspect]
     Route: 048
     Dates: start: 20030803, end: 20030803
  18. PREDNISOLONE [Suspect]
     Route: 048
     Dates: start: 20030804, end: 20030804
  19. PREDNISOLONE [Suspect]
     Route: 048
     Dates: start: 20030805, end: 20030805
  20. PREDNISOLONE [Suspect]
     Route: 048
     Dates: start: 20030806, end: 20030806
  21. PREDNISOLONE [Suspect]
     Route: 048
     Dates: start: 20030807, end: 20030807
  22. PREDNISOLONE [Suspect]
     Route: 048
     Dates: start: 20030808, end: 20030808
  23. PREDNISOLONE [Suspect]
     Route: 048
     Dates: start: 20030809, end: 20030809
  24. PREDNISOLONE [Suspect]
     Route: 048
     Dates: start: 20030810
  25. DECORTIN [Suspect]
     Route: 065
  26. CYMEVEN [Concomitant]
     Route: 048
     Dates: start: 20030727
  27. CIPROBAY [Concomitant]
     Dosage: 500/DAY. NO UNITS PROVIDED.
     Route: 048
  28. BISOPROLOL [Concomitant]
     Route: 048
     Dates: start: 20030730
  29. SUPRACOMBIN [Concomitant]
  30. FUROSEMIDE [Concomitant]
     Route: 048
     Dates: start: 20030820

REACTIONS (4)
  - BACTERIAL INFECTION [None]
  - NEPHRITIS INTERSTITIAL [None]
  - SEPSIS [None]
  - URINARY TRACT INFECTION [None]
